FAERS Safety Report 7990175-X (Version None)
Quarter: 2011Q4

REPORT INFORMATION
  Report Type: 
  Country: None (occurrence: None)
  Receive Date: 20111219
  Receipt Date: 20111216
  Transmission Date: 20120403
  Serious: Yes (Life-Threatening, Hospitalization, Other)
  Sender: FDA-Public Use
  Company Number: CA-BAYER-2011-121165

PATIENT
  Age: 78 Year
  Sex: Male
  Weight: 95 kg

DRUGS (16)
  1. DIMENHYDRINATE [Concomitant]
  2. METFORMIN HCL [Concomitant]
     Route: 048
  3. RAMIPRIL [Suspect]
     Dosage: 10 MG, QD
     Route: 048
  4. DESMOPRESSIN ACETATE [Concomitant]
  5. AVELOX [Suspect]
     Dosage: 400 MG, QD
     Route: 048
  6. OXYBUTYNIN [Suspect]
     Dosage: 5 MG, QD
     Route: 048
  7. ASPIRIN [Concomitant]
     Route: 048
  8. METOPROLOL TARTRATE [Concomitant]
     Route: 048
  9. NOVOMIX [INSULIN ASPART,INSULIN ASPART PROTAMINE] [Concomitant]
  10. RANITIDINE [Concomitant]
  11. TAMSULOSIN HCL [Concomitant]
  12. ATORVASTATIN [Concomitant]
     Route: 048
  13. GLYCERIN [Concomitant]
  14. HALOPERIDOL [Concomitant]
     Route: 048
  15. BETAMETHASONE [Concomitant]
     Route: 061
  16. MULTIPLE VITAMINS [Concomitant]

REACTIONS (3)
  - SWOLLEN TONGUE [None]
  - UPPER AIRWAY OBSTRUCTION [None]
  - ANGIOEDEMA [None]
